FAERS Safety Report 23962202 (Version 1)
Quarter: 2024Q2

REPORT INFORMATION
  Report Type: Spontaneous
  Country: US (occurrence: None)
  Receive Date: 20240610
  Receipt Date: 20240610
  Transmission Date: 20240716
  Serious: Yes (Disabling)
  Sender: FDA-Public Use
  Company Number: None

PATIENT
  Age: 48 Year
  Sex: Female
  Weight: 59.85 kg

DRUGS (2)
  1. DAXXIFY [Suspect]
     Active Substance: DAXIBOTULINUMTOXIN A-LANM
     Indication: Skin cosmetic procedure
     Route: 058
     Dates: start: 20240514, end: 20240514
  2. VIT D 500IU [Concomitant]

REACTIONS (4)
  - Off label use [None]
  - Product communication issue [None]
  - Product use in unapproved indication [None]
  - Neuromuscular toxicity [None]

NARRATIVE: CASE EVENT DATE: 20240517
